FAERS Safety Report 9700715 (Version 1)
Quarter: 2013Q4

REPORT INFORMATION
  Report Type: Spontaneous
  Country: ES (occurrence: ES)
  Receive Date: 20131121
  Receipt Date: 20131121
  Transmission Date: 20140711
  Serious: Yes (Life-Threatening, Other)
  Sender: FDA-Public Use
  Company Number: ES-JNJFOC-20131108333

PATIENT
  Sex: Female

DRUGS (7)
  1. DOXURUBICIN [Suspect]
     Indication: BREAST CANCER
     Dosage: OVER 15 MINUTES, AT DAY 1 EVERY 3 WEEKS; FOUR CYCLES
     Route: 040
  2. DOXURUBICIN [Suspect]
     Indication: BREAST CANCER
     Route: 040
  3. CYCLOPHOSPHAMIDE [Suspect]
     Indication: BREAST CANCER
     Dosage: OVER 5 TO 60 MINUTES, AT DAY 1 EVERY 3 WEEKS; FOUR CYCLES
     Route: 042
  4. CYCLOPHOSPHAMIDE [Suspect]
     Indication: BREAST CANCER
     Route: 042
  5. AVASTIN [Suspect]
     Indication: BREAST CANCER
     Dosage: AT DAY 1 EVERY 3 WEEKS; FOUR CYCLES
     Route: 042
  6. DOCETAXEL [Suspect]
     Indication: BREAST CANCER
     Dosage: AT DAY 1 EVERY 3 WEEKS; FOUR CYCLES
     Route: 042
  7. DOCETAXEL [Suspect]
     Indication: BREAST CANCER
     Route: 042

REACTIONS (15)
  - Neutropenia [Unknown]
  - Febrile neutropenia [Unknown]
  - Mucosal inflammation [Unknown]
  - Nausea [Unknown]
  - Vomiting [Unknown]
  - Fatigue [Unknown]
  - Hypersensitivity [Unknown]
  - Diarrhoea [Unknown]
  - Alopecia [Unknown]
  - Pain [Unknown]
  - Pyrexia [Unknown]
  - Nail disorder [Unknown]
  - Hypertension [Unknown]
  - Wrong technique in drug usage process [Unknown]
  - Drug ineffective [Unknown]
